FAERS Safety Report 4429318-3 (Version None)
Quarter: 2004Q3

REPORT INFORMATION
  Report Type: 
  Country: None (occurrence: None)
  Receive Date: 20040818
  Receipt Date: 20040818
  Transmission Date: 20050211
  Serious: Yes (Life-Threatening, Hospitalization)
  Sender: FDA-Public Use
  Company Number: None

PATIENT
  Age: 85 Year
  Sex: Male
  Weight: 87 kg

DRUGS (13)
  1. CARBAMAZEPINE [Suspect]
     Indication: COMPLEX PARTIAL SEIZURES
     Dosage: 600 MG BID ORAL
     Route: 048
     Dates: start: 20040202, end: 20040227
  2. SINEMT [Concomitant]
  3. SINEMET [Concomitant]
  4. BROMOCRIPTINE MESYLATE [Concomitant]
  5. CLONAZEPAM [Concomitant]
  6. TEGRETOL [Concomitant]
  7. GALANTAMINE [Concomitant]
  8. RABEPRAZOLE SODIUM [Concomitant]
  9. ACETAMINOPHEN [Concomitant]
  10. METHADONE HCL [Concomitant]
  11. METAMUCIL-2 [Concomitant]
  12. SORBITAL [Concomitant]
  13. SENNA [Concomitant]

REACTIONS (6)
  - ASTHENIA [None]
  - BUNDLE BRANCH BLOCK LEFT [None]
  - DEPRESSED LEVEL OF CONSCIOUSNESS [None]
  - DRUG TOXICITY [None]
  - PULMONARY OEDEMA [None]
  - STOMACH DISCOMFORT [None]
